FAERS Safety Report 4706056-0 (Version None)
Quarter: 2005Q2

REPORT INFORMATION
  Report Type: 
  Country: None (occurrence: None)
  Receive Date: 20050629
  Receipt Date: 20050617
  Transmission Date: 20051028
  Serious: Yes (Other)
  Sender: FDA-Public Use
  Company Number: 2005090198

PATIENT
  Age: 22 Year
  Sex: Female
  Weight: 61.6892 kg

DRUGS (4)
  1. DEPO-PROVERA [Suspect]
     Indication: CONTRACEPTION
     Dosage: 1ST INJECTION
     Dates: start: 20050510, end: 20050510
  2. DEPO-PROVERA [Suspect]
     Indication: ENDOMETRIOSIS
     Dosage: 1ST INJECTION
     Dates: start: 20050510, end: 20050510
  3. LEVAQUIN [Suspect]
     Indication: TONSILLITIS
     Dosage: ORAL
     Route: 048
     Dates: start: 20050613, end: 20050613
  4. LAMICTAL [Concomitant]

REACTIONS (3)
  - DIZZINESS [None]
  - TONSILLITIS [None]
  - TREMOR [None]
